FAERS Safety Report 20308360 (Version 1)
Quarter: 2022Q1

REPORT INFORMATION
  Report Type: Spontaneous
  Country: FR (occurrence: FR)
  Receive Date: 20220107
  Receipt Date: 20220107
  Transmission Date: 20220423
  Serious: Yes (Hospitalization)
  Sender: FDA-Public Use
  Company Number: None

PATIENT
  Age: 80 Year
  Sex: Male
  Weight: 58.4 kg

DRUGS (25)
  1. MOXIFLOXACIN HYDROCHLORIDE [Suspect]
     Active Substance: MOXIFLOXACIN HYDROCHLORIDE
     Indication: Wound infection
     Dosage: UNK
     Route: 065
     Dates: start: 20210811, end: 20210819
  2. GABAPENTIN [Suspect]
     Active Substance: GABAPENTIN
     Indication: Product used for unknown indication
     Dosage: 400 MG, QD
     Route: 065
     Dates: start: 20210817, end: 20210819
  3. GABAPENTIN [Suspect]
     Active Substance: GABAPENTIN
     Dosage: 100 MG, QD
     Route: 065
     Dates: start: 20210820, end: 20210820
  4. DULOXETINE HYDROCHLORIDE [Suspect]
     Active Substance: DULOXETINE HYDROCHLORIDE
     Indication: Product used for unknown indication
     Dosage: UNK
     Route: 065
     Dates: start: 20210716, end: 20210817
  5. RIFAMPIN [Suspect]
     Active Substance: RIFAMPIN
     Indication: Wound infection
     Dosage: UNK
     Route: 065
     Dates: start: 20210811, end: 20210817
  6. MORPHINE SULFATE [Suspect]
     Active Substance: MORPHINE SULFATE
     Indication: Product used for unknown indication
     Dosage: 10 MG, Q12H
     Route: 048
     Dates: start: 20210814, end: 20210816
  7. MORPHINE SULFATE [Suspect]
     Active Substance: MORPHINE SULFATE
     Dosage: UNK (20 MG LE MATIN, 10MG LE SOIR)
     Route: 048
     Dates: start: 20210816, end: 20210817
  8. MORPHINE SULFATE [Suspect]
     Active Substance: MORPHINE SULFATE
     Dosage: 10 MG, QD
     Route: 048
     Dates: start: 20210817, end: 20210820
  9. NEFOPAM HYDROCHLORIDE [Suspect]
     Active Substance: NEFOPAM HYDROCHLORIDE
     Indication: Product used for unknown indication
     Dosage: UNK
     Route: 065
     Dates: start: 20210814, end: 20210820
  10. ONDANSETRON [Concomitant]
     Active Substance: ONDANSETRON
     Indication: Product used for unknown indication
     Dosage: 8 MG, QD
     Route: 048
     Dates: start: 20210815, end: 20210830
  11. TAZOBACTAM [Concomitant]
     Active Substance: TAZOBACTAM
     Indication: Wound infection
     Dosage: UNK UNK, Q8H
     Route: 041
     Dates: start: 20210819
  12. OXYCODONE HYDROCHLORIDE [Concomitant]
     Active Substance: OXYCODONE HYDROCHLORIDE
     Indication: Product used for unknown indication
     Dosage: 1 MG, TOTAL
     Route: 041
     Dates: start: 20210820, end: 20210821
  13. OXYCODONE HYDROCHLORIDE [Concomitant]
     Active Substance: OXYCODONE HYDROCHLORIDE
     Dosage: 9.6 MG, TOTAL
     Route: 041
     Dates: start: 20210821, end: 20210822
  14. OXYCODONE HYDROCHLORIDE [Concomitant]
     Active Substance: OXYCODONE HYDROCHLORIDE
     Dosage: 14.4 MG, QD
     Route: 041
     Dates: start: 20210822, end: 20210827
  15. OXYCODONE HYDROCHLORIDE [Concomitant]
     Active Substance: OXYCODONE HYDROCHLORIDE
     Dosage: 33.6 MG, QD
     Route: 041
     Dates: start: 20210827, end: 20210831
  16. OXYCODONE HYDROCHLORIDE [Concomitant]
     Active Substance: OXYCODONE HYDROCHLORIDE
     Dosage: 38.4 MG, QD
     Route: 041
     Dates: start: 20210831, end: 20210903
  17. OXYCODONE HYDROCHLORIDE [Concomitant]
     Active Substance: OXYCODONE HYDROCHLORIDE
     Dosage: 48 MG, QD
     Route: 041
     Dates: start: 20210903, end: 20210906
  18. URAPIDIL [Concomitant]
     Active Substance: URAPIDIL
     Indication: Product used for unknown indication
     Dosage: 60 MG, QD (FORME LP)
     Route: 048
     Dates: end: 20210822
  19. LERCANIDIPINE HYDROCHLORIDE [Concomitant]
     Active Substance: LERCANIDIPINE HYDROCHLORIDE
     Indication: Product used for unknown indication
     Dosage: 20 MG, QD
     Route: 048
     Dates: end: 20210822
  20. ASPIRIN [Concomitant]
     Active Substance: ASPIRIN
     Indication: Product used for unknown indication
     Dosage: 100 MG, QD
     Route: 048
     Dates: end: 20210822
  21. MIDAZOLAM [Concomitant]
     Active Substance: MIDAZOLAM
     Indication: Product used for unknown indication
     Dosage: 2.4 MG, QD
     Route: 041
     Dates: start: 20210821, end: 20210822
  22. MIDAZOLAM [Concomitant]
     Active Substance: MIDAZOLAM
     Dosage: 7 MG, QD
     Route: 041
     Dates: start: 20210822, end: 20210827
  23. MIDAZOLAM [Concomitant]
     Active Substance: MIDAZOLAM
     Dosage: 9.4 MG, QD
     Route: 041
     Dates: start: 20210827, end: 20210830
  24. MIDAZOLAM [Concomitant]
     Active Substance: MIDAZOLAM
     Dosage: 18.6 MG, QD
     Route: 041
     Dates: start: 20210830, end: 20210902
  25. MIDAZOLAM [Concomitant]
     Active Substance: MIDAZOLAM
     Dosage: 24 MG, QD
     Route: 041
     Dates: start: 20210902, end: 20210906

REACTIONS (1)
  - Cholestatic liver injury [Recovering/Resolving]

NARRATIVE: CASE EVENT DATE: 20210823
